FAERS Safety Report 8617650 (Version 2)
Quarter: 2012Q4

REPORT INFORMATION
  Report Type: 
  Country: US (occurrence: US)
  Receive Date: 20120615
  Receipt Date: 20121030
  Transmission Date: 20130627
  Serious: Yes (Other)
  Sender: FDA-Public Use
  Company Number: US-ROCHE-784223

PATIENT
  Age: 21 Year
  Sex: Female
  Weight: 59.02 kg

DRUGS (3)
  1. ACCUTANE [Suspect]
     Indication: ACNE
     Dosage: 80 mg alternating with 40 mg
     Route: 065
     Dates: start: 199903, end: 199908
  2. ORTHO-CEPT [Concomitant]
     Indication: CONTRACEPTION
  3. YASMIN [Concomitant]
     Indication: CONTRACEPTION

REACTIONS (12)
  - Inflammatory bowel disease [Unknown]
  - Crohn^s disease [Unknown]
  - Colitis ulcerative [Unknown]
  - Stress [Unknown]
  - Depression [Unknown]
  - Fistula [Unknown]
  - Aspartate aminotransferase increased [Unknown]
  - Decreased appetite [Unknown]
  - Weight decreased [Unknown]
  - Chest discomfort [Unknown]
  - Headache [Unknown]
  - Pruritus [Unknown]
